FAERS Safety Report 9053354 (Version 2)
Quarter: 2013Q2

REPORT INFORMATION
  Report Type: Spontaneous
  Country: CA (occurrence: CA)
  Receive Date: 20130207
  Receipt Date: 20130606
  Transmission Date: 20140414
  Serious: Yes (Other)
  Sender: FDA-Public Use
  Company Number: CA-NAPPMUNDI-CAN-2013-0003728

PATIENT
  Age: 46 Year
  Sex: Male

DRUGS (2)
  1. OXYCODONE [Suspect]
     Indication: PRODUCT USED FOR UNKNOWN INDICATION
  2. COCAINE [Suspect]
     Indication: PRODUCT USED FOR UNKNOWN INDICATION

REACTIONS (6)
  - Drug dependence [Unknown]
  - Substance abuse [Unknown]
  - Psychomotor skills impaired [Unknown]
  - Impaired driving ability [Unknown]
  - Aggression [Unknown]
  - Confusional state [Unknown]
